FAERS Safety Report 20845228 (Version 2)
Quarter: 2022Q2

REPORT INFORMATION
  Report Type: Spontaneous
  Country: US (occurrence: US)
  Receive Date: 20220518
  Receipt Date: 20220518
  Transmission Date: 20220720
  Serious: Yes (Hospitalization)
  Sender: FDA-Public Use
  Company Number: US-GILEAD-2022-0581861

PATIENT
  Age: 28 Year
  Sex: Male

DRUGS (11)
  1. VEMLIDY [Suspect]
     Active Substance: TENOFOVIR ALAFENAMIDE FUMARATE
     Indication: HIV infection
     Dosage: 25 MG
     Route: 065
     Dates: start: 20190801, end: 20220108
  2. VIREAD [Suspect]
     Active Substance: TENOFOVIR DISOPROXIL FUMARATE
     Indication: HIV infection
     Route: 065
  3. BIKTARVY [Suspect]
     Active Substance: BICTEGRAVIR SODIUM\EMTRICITABINE\TENOFOVIR ALAFENAMIDE FUMARATE
     Indication: HIV infection
     Route: 065
     Dates: start: 20190801, end: 20220108
  4. DESCOVY [Suspect]
     Active Substance: EMTRICITABINE\TENOFOVIR ALAFENAMIDE FUMARATE
     Indication: HIV infection
     Route: 065
     Dates: start: 20191101, end: 20200101
  5. TRUVADA [Suspect]
     Active Substance: EMTRICITABINE\TENOFOVIR DISOPROXIL FUMARATE
     Indication: HIV infection
     Route: 065
     Dates: start: 20200801, end: 20201030
  6. GENVOYA [Suspect]
     Active Substance: COBICISTAT\ELVITEGRAVIR\EMTRICITABINE\TENOFOVIR ALAFENAMIDE FUMARATE
     Indication: HIV infection
     Route: 065
  7. SYMTUZA [Suspect]
     Active Substance: COBICISTAT\DARUNAVIR\EMTRICITABINE\TENOFOVIR ALAFENAMIDE
     Indication: HIV infection
     Route: 065
  8. ONDANSETRON HCL [Concomitant]
     Active Substance: ONDANSETRON HYDROCHLORIDE
     Indication: Vomiting
  9. CHOLECALCIFEROL [Concomitant]
     Active Substance: CHOLECALCIFEROL
  10. CALCIUM [Concomitant]
     Active Substance: CALCIUM
  11. HYDROXYZINE [Concomitant]
     Active Substance: HYDROXYZINE HYDROCHLORIDE
     Indication: Anxiety

REACTIONS (34)
  - Intervertebral disc degeneration [Not Recovered/Not Resolved]
  - Myositis [Recovered/Resolved with Sequelae]
  - Face injury [Not Recovered/Not Resolved]
  - Cyst [Recovered/Resolved with Sequelae]
  - Mitochondrial DNA mutation [Recovering/Resolving]
  - Joint noise [Not Recovered/Not Resolved]
  - Swelling face [Recovering/Resolving]
  - Trigeminal nerve disorder [Recovering/Resolving]
  - Scoliosis [Recovered/Resolved with Sequelae]
  - Dehydration [Recovered/Resolved]
  - Back pain [Recovered/Resolved with Sequelae]
  - Bone pain [Recovered/Resolved with Sequelae]
  - Arthritis [Recovered/Resolved with Sequelae]
  - Dizziness [Recovering/Resolving]
  - Vomiting [Recovered/Resolved with Sequelae]
  - Nausea [Recovering/Resolving]
  - Hypersensitivity [Recovered/Resolved with Sequelae]
  - Bone loss [Not Recovered/Not Resolved]
  - Osteopenia [Not Recovered/Not Resolved]
  - Arthralgia [Not Recovered/Not Resolved]
  - Amnesia [Not Recovered/Not Resolved]
  - Balance disorder [Not Recovered/Not Resolved]
  - Dental caries [Recovered/Resolved with Sequelae]
  - Eye pain [Recovering/Resolving]
  - Fall [Recovering/Resolving]
  - Ingrown hair [Recovering/Resolving]
  - Folliculitis [Recovering/Resolving]
  - Dermatitis [Recovering/Resolving]
  - Dysphagia [Recovering/Resolving]
  - Alopecia [Recovering/Resolving]
  - Muscle atrophy [Recovering/Resolving]
  - Headache [Recovered/Resolved]
  - Unevaluable event [Recovering/Resolving]
  - Off label use [Unknown]

NARRATIVE: CASE EVENT DATE: 20190101
